FAERS Safety Report 17547414 (Version 1)
Quarter: 2020Q1

REPORT INFORMATION
  Report Type: Spontaneous
  Country: GB (occurrence: GB)
  Receive Date: 20200316
  Receipt Date: 20200316
  Transmission Date: 20200409
  Serious: Yes (Disabling, Other)
  Sender: FDA-Public Use
  Company Number: GB-PFIZER INC-2020107808

PATIENT
  Age: 50 Year
  Sex: Female
  Weight: 63 kg

DRUGS (2)
  1. SERTRALINE HCL [Suspect]
     Active Substance: SERTRALINE HYDROCHLORIDE
     Indication: DEPRESSION
     Dosage: 100 MG, UNK (ONCE OR TWICE DAILY AT DIFFERENT PERIODS OVER 20 YEARS)
     Route: 048
     Dates: start: 1997, end: 201802
  2. RABEPRAZOLE [Concomitant]
     Active Substance: RABEPRAZOLE
     Indication: BARRETT^S OESOPHAGUS
     Dosage: 40 MG, 1X/DAY

REACTIONS (5)
  - Periorbital oedema [Not Recovered/Not Resolved]
  - Facial pain [Unknown]
  - Eye pain [Unknown]
  - Swelling face [Unknown]
  - Visual impairment [Unknown]

NARRATIVE: CASE EVENT DATE: 2003
